FAERS Safety Report 7365101-7 (Version None)
Quarter: 2011Q1

REPORT INFORMATION
  Report Type: 
  Country: None (occurrence: None)
  Receive Date: 20110321
  Receipt Date: 20110315
  Transmission Date: 20110831
  Serious: Yes (Death, Congenital Anomaly)
  Sender: FDA-Public Use
  Company Number: NL-PFIZER INC-2011057300

PATIENT
  Age: 4 Month
  Sex: Female

DRUGS (2)
  1. LORAZEPAM [Concomitant]
     Route: 064
  2. SERTRALINE HYDROCHLORIDE [Suspect]
     Dosage: 50 MG, UNK
     Route: 064
     Dates: start: 20090101, end: 20100601

REACTIONS (3)
  - DRUG EXPOSURE DURING PREGNANCY [None]
  - DEATH [None]
  - HEART DISEASE CONGENITAL [None]
